FAERS Safety Report 17620098 (Version 3)
Quarter: 2020Q2

REPORT INFORMATION
  Report Type: Spontaneous
  Country: JP (occurrence: JP)
  Receive Date: 20200403
  Receipt Date: 20200620
  Transmission Date: 20200713
  Serious: Yes (Hospitalization)
  Sender: FDA-Public Use
  Company Number: JP-AMGEN-JPNSP2020052359

PATIENT
  Age: 86 Year
  Sex: Male
  Weight: 53.8 kg

DRUGS (12)
  1. PARSABIV [Suspect]
     Active Substance: ETELCALCETIDE HYDROCHLORIDE
     Dosage: 5 MILLIGRAM, 3 TIMES/WK
     Route: 010
     Dates: start: 20181011, end: 20181106
  2. OXAROL [Concomitant]
     Active Substance: MAXACALCITOL
     Dosage: 2.5 MICROGRAM, 3 TIMES/WK
     Route: 065
     Dates: start: 20190221, end: 20190718
  3. MAXACALCITOL [Concomitant]
     Active Substance: MAXACALCITOL
     Dosage: 2.5 MUG, Q56H
     Route: 065
     Dates: start: 20190720
  4. OXAROL [Concomitant]
     Active Substance: MAXACALCITOL
     Dosage: 5 MICROGRAM, 3 TIMES/WK
     Route: 065
     Dates: start: 20181108, end: 20190219
  5. EPOETIN ALFA [Concomitant]
     Active Substance: ERYTHROPOIETIN
     Indication: PRODUCT USED FOR UNKNOWN INDICATION
     Dosage: 2250 IU, QW
     Route: 065
     Dates: end: 20200128
  6. PARSABIV [Suspect]
     Active Substance: ETELCALCETIDE HYDROCHLORIDE
     Indication: HYPERPARATHYROIDISM SECONDARY
     Dosage: 2.5 MILLIGRAM, 3 TIMES/WK
     Route: 010
     Dates: start: 20180906, end: 20181009
  7. PARSABIV [Suspect]
     Active Substance: ETELCALCETIDE HYDROCHLORIDE
     Dosage: 2.5 MILLIGRAM, 3 TIMES/WK
     Route: 010
     Dates: start: 20181108, end: 20190917
  8. EPOETIN ALFA [Concomitant]
     Active Substance: ERYTHROPOIETIN
     Dosage: 4500 IU, QW
     Route: 065
     Dates: start: 20200130, end: 20200208
  9. FESIN [SACCHARATED IRON OXIDE] [Concomitant]
     Active Substance: IRON SUCROSE
     Dosage: 40 MILLIGRAM, QWK
     Route: 065
     Dates: start: 20191121, end: 20200109
  10. PARSABIV [Suspect]
     Active Substance: ETELCALCETIDE HYDROCHLORIDE
     Dosage: 2.5 MILLIGRAM, QWK
     Route: 010
     Dates: start: 20190924
  11. ALFACALCIDOL [Concomitant]
     Active Substance: ALFACALCIDOL
     Dosage: 1 MUG, EVERYDAY
     Route: 048
     Dates: end: 20181108
  12. FESIN [SACCHARATED IRON OXIDE] [Concomitant]
     Active Substance: IRON SUCROSE
     Dosage: 40 MILLIGRAM, QWK
     Route: 065
     Dates: start: 20190207, end: 20190328

REACTIONS (4)
  - Peripheral arterial occlusive disease [Recovered/Resolved]
  - Folliculitis [Recovered/Resolved]
  - Dehydration [Recovered/Resolved]
  - Decubitus ulcer [Not Recovered/Not Resolved]

NARRATIVE: CASE EVENT DATE: 20190509
